FAERS Safety Report 8859109 (Version 1)
Quarter: 2012Q4

REPORT INFORMATION
  Report Type: 
  Country: FR (occurrence: FR)
  Receive Date: 20121024
  Receipt Date: 20121024
  Transmission Date: 20130627
  Serious: Yes (Hospitalization, Other)
  Sender: FDA-Public Use
  Company Number: FR-PFIZER INC-2012218803

PATIENT
  Age: 81 Year
  Sex: Male

DRUGS (10)
  1. SUTENT [Suspect]
     Dosage: 37.5 mg, 1x/day
     Route: 048
     Dates: start: 20120423, end: 20120515
  2. SUTENT [Suspect]
     Dosage: 37.5 mg, 1x/day
     Dates: start: 20120522, end: 20120601
  3. SUTENT [Suspect]
     Dosage: 25 mg, 1x/day
     Dates: start: 20120603, end: 20120702
  4. SUTENT [Suspect]
     Dosage: 25 mg, 1x/day
     Dates: start: 20120716, end: 20120813
  5. BROMAZEPAM [Concomitant]
  6. OMEPRAZOLE [Concomitant]
  7. STABLON [Concomitant]
  8. CARDENSIEL [Concomitant]
  9. HEMIGOXINE [Concomitant]
  10. PREVISCAN [Concomitant]
     Dosage: 20 mg, UNK
     Route: 048
     Dates: start: 2007

REACTIONS (8)
  - Melaena [Recovered/Resolved]
  - Gastritis [Recovering/Resolving]
  - Duodenitis [Recovering/Resolving]
  - Atrial fibrillation [Unknown]
  - Anaemia [Unknown]
  - Neutropenia [Unknown]
  - Asthenia [Unknown]
  - Hypoaesthesia [Unknown]
